FAERS Safety Report 12483686 (Version 1)
Quarter: 2016Q2

REPORT INFORMATION
  Report Type: Spontaneous
  Country: US (occurrence: None)
  Receive Date: 20160620
  Receipt Date: 20160620
  Transmission Date: 20160815
  Serious: No
  Sender: FDA-Public Use
  Company Number: None

PATIENT
  Age: 49 Year
  Sex: Female

DRUGS (8)
  1. LISINOPRIL. [Concomitant]
     Active Substance: LISINOPRIL
  2. METHOTREX [Concomitant]
  3. FOLIC ACID. [Concomitant]
     Active Substance: FOLIC ACID
  4. ASA [Concomitant]
     Active Substance: ASPIRIN
  5. PRILOSEC [Concomitant]
     Active Substance: OMEPRAZOLE MAGNESIUM
  6. ENBREL [Suspect]
     Active Substance: ETANERCEPT
     Indication: AUTOIMMUNE DISORDER
     Route: 058
     Dates: start: 20150909, end: 201602
  7. DILTIAZEM [Concomitant]
     Active Substance: DILTIAZEM
  8. SIMVASTATIN. [Concomitant]
     Active Substance: SIMVASTATIN

REACTIONS (3)
  - Weight increased [None]
  - Fluid retention [None]
  - Cardiac disorder [None]

NARRATIVE: CASE EVENT DATE: 201602
